FAERS Safety Report 9115095 (Version 4)
Quarter: 2013Q1

REPORT INFORMATION
  Report Type: Spontaneous
  Country: BR (occurrence: BR)
  Receive Date: 20130225
  Receipt Date: 20130328
  Transmission Date: 20140127
  Serious: Yes (Hospitalization)
  Sender: FDA-Public Use
  Company Number: PHHY2013BR017793

PATIENT
  Sex: Female

DRUGS (3)
  1. TRILEPTAL [Suspect]
     Indication: EPILEPSY
     Dosage: 4 DF, DAILY
     Route: 048
  2. TRILEPTAL [Suspect]
     Dosage: 3 DF, DAILY
     Route: 048
     Dates: start: 20130320
  3. FRISIUM [Concomitant]
     Indication: SEDATIVE THERAPY
     Dosage: 1 TABLET EVERY NIGHT
     Route: 048

REACTIONS (3)
  - Lung infection [Unknown]
  - Pneumonia aspiration [Recovering/Resolving]
  - Convulsion [Recovering/Resolving]
